FAERS Safety Report 26035543 (Version 1)
Quarter: 2025Q4

REPORT INFORMATION
  Report Type: Spontaneous
  Country: US (occurrence: US)
  Receive Date: 20251112
  Receipt Date: 20251112
  Transmission Date: 20260117
  Serious: Yes (Life-Threatening, Other)
  Sender: CB FLEET
  Company Number: US-PRESTIGE-202511-US-003651

PATIENT
  Age: 15 Year
  Sex: Male

DRUGS (1)
  1. BC HEADACHE POWDER [Suspect]
     Active Substance: ASPIRIN\CAFFEINE
     Indication: Headache
     Dosage: ONE DOSE
     Route: 048

REACTIONS (4)
  - Anaphylactic reaction [Recovered/Resolved]
  - Loss of consciousness [Recovered/Resolved]
  - Swelling face [Recovered/Resolved]
  - Pallor [Recovered/Resolved]
